FAERS Safety Report 4938490-8 (Version None)
Quarter: 2006Q1

REPORT INFORMATION
  Report Type: 
  Country: None (occurrence: None)
  Receive Date: 20060302
  Receipt Date: 20060208
  Transmission Date: 20060701
  Serious: Yes (Other)
  Sender: FDA-Public Use
  Company Number: GB200602002019

PATIENT
  Age: 36 Year
  Sex: Female

DRUGS (3)
  1. CYMBALTA [Suspect]
     Indication: ANXIETY
     Dosage: 60 MG, UNK
     Route: 065
     Dates: start: 20040201
  2. PAROXETINE HCL [Concomitant]
  3. PERINDOPRIL (PERINDOPRIL) [Concomitant]

REACTIONS (2)
  - CARDIOMYOPATHY [None]
  - MYOCARDITIS [None]
